FAERS Safety Report 9973425 (Version 2)
Quarter: 2014Q1

REPORT INFORMATION
  Report Type: Spontaneous
  Country: US (occurrence: US)
  Receive Date: 20140306
  Receipt Date: 20140325
  Transmission Date: 20141002
  Serious: Yes (Hospitalization, Other)
  Sender: FDA-Public Use
  Company Number: US-PFIZER INC-2014061553

PATIENT
  Age: 63 Year
  Sex: Male

DRUGS (20)
  1. LYRICA [Suspect]
     Dosage: 75 MG, 2X/DAY
     Route: 048
  2. NITROSTAT [Suspect]
     Dosage: 0.4 MG, AS NEEDED (5^X3^ P.R.N)
     Route: 060
  3. XANAX [Concomitant]
     Indication: ANXIETY
     Dosage: 1 MG, DAILY
  4. XANAX [Concomitant]
     Indication: PANIC DISORDER
     Dosage: 0.5 MG, UNK
  5. XANAX [Concomitant]
     Indication: INSOMNIA
  6. ATENOLOL [Concomitant]
     Dosage: 25 MG, DAILY
  7. LIPITOR [Concomitant]
     Indication: BLOOD CHOLESTEROL ABNORMAL
     Dosage: 40 MG, 1X/DAY (BEDTIME)
  8. DILTIAZEM [Concomitant]
     Dosage: 240 MG, 2X/DAY
  9. ENALAPRIL [Concomitant]
     Indication: BLOOD PRESSURE ABNORMAL
     Dosage: 20 MG, 2X/DAY
  10. ESTRADIOL [Concomitant]
     Indication: HORMONE LEVEL ABNORMAL
     Dosage: 2 MG, DAILY
  11. PROZAC [Concomitant]
     Dosage: 80 MG, DAILY
  12. HYDROCHLOROTHIAZIDE [Concomitant]
     Indication: URINARY TRACT DISORDER
     Dosage: 25 MG, DAILY
  13. HYDROCHLOROTHIAZIDE [Concomitant]
     Indication: BLOOD PRESSURE ABNORMAL
  14. LEVOTHYROXINE [Concomitant]
     Indication: THYROID DISORDER
     Dosage: 25 MG, DAILY
  15. MELOXICAM [Concomitant]
     Dosage: 7.5 MG, UNK
  16. MIRTAZAPINE [Concomitant]
     Indication: DEPRESSION
     Dosage: 15 MG, 1X/DAY (BEDTIME)
  17. MIRTAZAPINE [Concomitant]
     Indication: SLEEP DISORDER
  18. HYDROCODONE W/ACETAMINOPHEN [Concomitant]
     Indication: ARTHRITIS
     Dosage: 7.5/325 MG, UNK
  19. HYDROCODONE W/ACETAMINOPHEN [Concomitant]
     Indication: ARTHRALGIA
  20. OMEPRAZOLE MAGNESIUM [Concomitant]
     Indication: GASTROOESOPHAGEAL REFLUX DISEASE
     Dosage: 20.5 MG, DAILY

REACTIONS (24)
  - Angina pectoris [Unknown]
  - Hiatus hernia [Unknown]
  - Blood creatinine increased [Unknown]
  - Coronary artery stenosis [Unknown]
  - Hypokalaemia [Unknown]
  - Renal failure acute [Unknown]
  - Hypertension [Unknown]
  - Type 1 diabetes mellitus [Unknown]
  - Carotid artery disease [Unknown]
  - Pulmonary hypertension [Unknown]
  - Cardiac failure congestive [Unknown]
  - Impaired gastric emptying [Unknown]
  - Intestinal ischaemia [Unknown]
  - Depression [Unknown]
  - Neuropathy peripheral [Unknown]
  - Obesity [Unknown]
  - Glycosylated haemoglobin increased [Unknown]
  - Anxiety [Unknown]
  - Dyslipidaemia [Unknown]
  - Arthritis [Unknown]
  - Headache [Unknown]
  - Fibromyalgia [Unknown]
  - Ulcer [Unknown]
  - Gastrooesophageal reflux disease [Unknown]
